FAERS Safety Report 24175002 (Version 9)
Quarter: 2025Q2

REPORT INFORMATION
  Report Type: Report from Study
  Country: ZA (occurrence: ZA)
  Receive Date: 20240805
  Receipt Date: 20250527
  Transmission Date: 20250716
  Serious: Yes (Other)
  Sender: NOVARTIS
  Company Number: ZA-002147023-NVSC2024ZA150499

PATIENT
  Age: 50 Year
  Sex: Male

DRUGS (3)
  1. SIPONIMOD [Suspect]
     Active Substance: SIPONIMOD
     Indication: Secondary progressive multiple sclerosis
     Dosage: 2 MG, QD
     Route: 048
     Dates: start: 20221207
  2. SIPONIMOD [Suspect]
     Active Substance: SIPONIMOD
     Indication: Multiple sclerosis
     Dosage: 20 MG, QMO
     Route: 058
  3. SIPONIMOD [Suspect]
     Active Substance: SIPONIMOD
     Dosage: 2 MG, QD
     Route: 048

REACTIONS (5)
  - Multiple sclerosis [Not Recovered/Not Resolved]
  - Micturition urgency [Recovering/Resolving]
  - Urinary retention [Recovering/Resolving]
  - Automatic bladder [Not Recovered/Not Resolved]
  - Neurological decompensation [Recovering/Resolving]
